FAERS Safety Report 5887242-3 (Version None)
Quarter: 2008Q3

REPORT INFORMATION
  Report Type: 
  Country: None (occurrence: None)
  Receive Date: 20080915
  Receipt Date: 20080905
  Transmission Date: 20090109
  Serious: Yes (Death)
  Sender: FDA-Public Use
  Company Number: 2008BI022552

PATIENT
  Age: 44 Year
  Sex: Female

DRUGS (8)
  1. TYSABRI [Suspect]
     Indication: MULTIPLE SCLEROSIS
     Dosage: 300 MG; QM; IV
     Route: 042
     Dates: start: 20080710, end: 20080813
  2. XANAX [Concomitant]
  3. ATIVAN [Concomitant]
  4. OXYCONTIN [Concomitant]
  5. DILAUDID [Concomitant]
  6. LUNESTA [Concomitant]
  7. CALCIUM GLUCONATE [Concomitant]
  8. COUMADIN [Concomitant]

REACTIONS (1)
  - PULMONARY EMBOLISM [None]
